FAERS Safety Report 6398711-4 (Version None)
Quarter: 2009Q4

REPORT INFORMATION
  Report Type: 
  Country: None (occurrence: None)
  Receive Date: 20091013
  Receipt Date: 20081008
  Transmission Date: 20100525
  Serious: Yes (Other)
  Sender: FDA-Public Use
  Company Number: PHEH2009US07719

PATIENT
  Sex: Female

DRUGS (1)
  1. RECLAST [Suspect]
     Dosage: UNK, UNK
     Dates: start: 20080723

REACTIONS (14)
  - ARTHRALGIA [None]
  - BACK PAIN [None]
  - BONE PAIN [None]
  - DENTAL CARIES [None]
  - DRY MOUTH [None]
  - ENDODONTIC PROCEDURE [None]
  - GASTROINTESTINAL INFECTION [None]
  - MASTICATION DISORDER [None]
  - PAIN [None]
  - STAPHYLOCOCCAL ABSCESS [None]
  - TOOTH ABSCESS [None]
  - TOOTH EXTRACTION [None]
  - TOOTH FRACTURE [None]
  - TOOTH LOSS [None]
